FAERS Safety Report 14855935 (Version 8)
Quarter: 2019Q3

REPORT INFORMATION
  Report Type: Report from Study
  Country: KR (occurrence: KR)
  Receive Date: 20180507
  Receipt Date: 20190709
  Transmission Date: 20191004
  Serious: Yes (Hospitalization)
  Sender: FDA-Public Use
  Company Number: KR-PFIZER INC-2018172551

PATIENT
  Age: 36 Year
  Sex: Male
  Weight: 69 kg

DRUGS (6)
  1. ALUMINIUM HYDROXIDE [Concomitant]
     Active Substance: ALUMINUM HYDROXIDE
     Dosage: 300 MG, 3X/DAY
     Route: 048
     Dates: start: 20180320, end: 20180322
  2. BESZYME [Concomitant]
     Dosage: 1 DF, 3X/DAY
     Route: 048
     Dates: start: 20180320, end: 20180401
  3. FERROUS SULFATE. [Concomitant]
     Active Substance: FERROUS SULFATE
     Dosage: 256 MG, 2X/DAY
     Route: 048
     Dates: start: 20180320, end: 20180430
  4. ACETAMINOPHEN. [Concomitant]
     Active Substance: ACETAMINOPHEN
     Dosage: 1300 MG, 3X/DAY
     Route: 048
     Dates: start: 20180320, end: 20180322
  5. BOSUTINIB [Suspect]
     Active Substance: BOSUTINIB
     Indication: MYELOID LEUKAEMIA
     Dosage: 400 MG, DAILY
     Dates: start: 20150213, end: 20150604
  6. BOSUTINIB [Suspect]
     Active Substance: BOSUTINIB
     Dosage: 400 MG, DAILY
     Dates: start: 20150617, end: 20180425

REACTIONS (1)
  - Cellulitis orbital [Recovered/Resolved]

NARRATIVE: CASE EVENT DATE: 20180424
